FAERS Safety Report 5369223-1 (Version None)
Quarter: 2007Q2

REPORT INFORMATION
  Report Type: 
  Country: None (occurrence: None)
  Receive Date: 20070625
  Receipt Date: 20070301
  Transmission Date: 20071010
  Serious: No
  Sender: FDA-Public Use
  Company Number: US-ASTRAZENECA-2007UW03927

PATIENT
  Age: 65 Year
  Sex: Female
  Weight: 104.3 kg

DRUGS (6)
  1. CRESTOR [Suspect]
     Indication: BLOOD CHOLESTEROL INCREASED
     Route: 048
     Dates: start: 20070221
  2. CALAN [Concomitant]
  3. ALLEGRA [Concomitant]
  4. BENICAR [Concomitant]
  5. TRIAMTERENE W/ HYDROCHLOROTHIAZIDE [Concomitant]
  6. PLAVIX [Concomitant]

REACTIONS (4)
  - LYMPHADENOPATHY [None]
  - MUSCLE SPASMS [None]
  - MYALGIA [None]
  - TINNITUS [None]
